FAERS Safety Report 24444677 (Version 2)
Quarter: 2024Q4

REPORT INFORMATION
  Report Type: Report from Study
  Country: US (occurrence: US)
  Receive Date: 20241016
  Receipt Date: 20241017
  Transmission Date: 20250114
  Serious: No
  Sender: ROCHE
  Company Number: US-ROCHE-2822103

PATIENT
  Age: 63 Year
  Sex: Female
  Weight: 45.36 kg

DRUGS (6)
  1. RITUXAN [Suspect]
     Active Substance: RITUXIMAB
     Indication: Glomerulonephritis minimal lesion
     Dosage: ONCE EVERY SIX MONTH
     Route: 042
     Dates: start: 2020
  2. RITUXAN [Suspect]
     Active Substance: RITUXIMAB
     Indication: Nephrotic syndrome
  3. RITUXAN [Suspect]
     Active Substance: RITUXIMAB
     Indication: Glomerulonephropathy
  4. PREDNISONE [Concomitant]
     Active Substance: PREDNISONE
     Indication: Nephropathy
     Dosage: NO
     Route: 048
  5. PREDNISONE [Concomitant]
     Active Substance: PREDNISONE
     Dosage: NO
     Route: 048
  6. BUMETANIDE [Concomitant]
     Active Substance: BUMETANIDE
     Indication: Nephropathy
     Route: 048

REACTIONS (2)
  - Off label use [Unknown]
  - No adverse event [Unknown]

NARRATIVE: CASE EVENT DATE: 20200101
